FAERS Safety Report 14314287 (Version 3)
Quarter: 2019Q3

REPORT INFORMATION
  Report Type: Spontaneous
  Country: IT (occurrence: IT)
  Receive Date: 20171221
  Receipt Date: 20190809
  Transmission Date: 20191004
  Serious: Yes (Hospitalization, Other)
  Sender: FDA-Public Use
  Company Number: IT-JNJFOC-20171227620

PATIENT
  Age: 36 Year
  Sex: Male

DRUGS (4)
  1. BLEOMYCIN [Suspect]
     Active Substance: BLEOMYCIN SULFATE
     Indication: HODGKIN^S DISEASE
     Dosage: IN 1980S?UNK UNK,QCY; CYCLICAL
     Route: 065
  2. DACARBAZINE. [Suspect]
     Active Substance: DACARBAZINE
     Indication: HODGKIN^S DISEASE
     Dosage: IN 1980S?UNK UNK,QCY; CYCLICAL
     Route: 065
  3. DOXORUBICIN HYDROCHLORIDE. [Suspect]
     Active Substance: DOXORUBICIN HYDROCHLORIDE
     Indication: HODGKIN^S DISEASE
     Dosage: IN 1980S?UNK UNK,QCY; CYCLICAL
     Route: 065
  4. VINBLASTINE [Suspect]
     Active Substance: VINBLASTINE
     Indication: HODGKIN^S DISEASE
     Dosage: IN THE 1980S?UNK UNK,QCY; CYCLICAL
     Route: 065

REACTIONS (5)
  - Mitral valve disease [Unknown]
  - Off label use [Unknown]
  - Cardiotoxicity [Unknown]
  - Aortic valve disease [Unknown]
  - Product use in unapproved indication [Unknown]
